FAERS Safety Report 16724863 (Version 1)
Quarter: 2019Q3

REPORT INFORMATION
  Report Type: Spontaneous
  Country: US (occurrence: US)
  Receive Date: 20190821
  Receipt Date: 20190821
  Transmission Date: 20191005
  Serious: No
  Sender: FDA-Public Use
  Company Number: US-PFIZER INC-2019357091

PATIENT
  Age: 74 Year
  Sex: Female
  Weight: 59.86 kg

DRUGS (1)
  1. IBUPROFEN. [Suspect]
     Active Substance: IBUPROFEN
     Indication: SYSTEMIC LUPUS ERYTHEMATOSUS
     Dosage: 800 MG, 4X/DAY

REACTIONS (3)
  - Immune system disorder [Unknown]
  - Off label use [Unknown]
  - Product use in unapproved indication [Unknown]
